FAERS Safety Report 5684447-1 (Version None)
Quarter: 2008Q1

REPORT INFORMATION
  Report Type: 
  Country: None (occurrence: None)
  Receive Date: 20080328
  Receipt Date: 20080319
  Transmission Date: 20080703
  Serious: Yes (Hospitalization, Other)
  Sender: FDA-Public Use
  Company Number: US-MERCK-0707USA02674

PATIENT
  Age: 75 Year
  Sex: Female

DRUGS (1)
  1. FOSAMAX [Suspect]
     Indication: OSTEOPOROSIS
     Route: 048
     Dates: start: 19960101, end: 20060101

REACTIONS (21)
  - ADVERSE DRUG REACTION [None]
  - ARRHYTHMIA [None]
  - BLOOD CHOLESTEROL INCREASED [None]
  - CARDIAC DISORDER [None]
  - CHILLS [None]
  - DENTAL CARIES [None]
  - DYSPNOEA [None]
  - GLAUCOMA [None]
  - IMPAIRED HEALING [None]
  - INFECTION [None]
  - INTRAOCULAR PRESSURE TEST ABNORMAL [None]
  - MALAISE [None]
  - MYOCARDIAL INFARCTION [None]
  - OSTEONECROSIS [None]
  - PULPITIS DENTAL [None]
  - TEMPOROMANDIBULAR JOINT SYNDROME [None]
  - THYROID DISORDER [None]
  - TOOTH ABSCESS [None]
  - TOOTHACHE [None]
  - TREMOR [None]
  - VOMITING [None]
